FAERS Safety Report 7704209-0 (Version None)
Quarter: 2011Q3

REPORT INFORMATION
  Report Type: 
  Country: None (occurrence: None)
  Receive Date: 20110823
  Receipt Date: 20110819
  Transmission Date: 20111222
  Serious: Yes (Other)
  Sender: FDA-Public Use
  Company Number: US-BAYER-2011-075680

PATIENT
  Sex: Female

DRUGS (4)
  1. YASMIN [Suspect]
     Dosage: UNK
     Dates: start: 20070101
  2. YASMIN [Suspect]
     Dosage: UNK
     Dates: start: 20050101, end: 20060101
  3. YAZ [Suspect]
     Dosage: UNK
     Dates: start: 20050101, end: 20060101
  4. YAZ [Suspect]
     Dosage: UNK
     Dates: start: 20070101

REACTIONS (4)
  - PAIN [None]
  - EMOTIONAL DISTRESS [None]
  - GALLBLADDER DISORDER [None]
  - INJURY [None]
